FAERS Safety Report 11699812 (Version 1)
Quarter: 2015Q4

REPORT INFORMATION
  Report Type: Spontaneous
  Country: US (occurrence: US)
  Receive Date: 20151105
  Receipt Date: 20151105
  Transmission Date: 20160304
  Serious: No
  Sender: FDA-Public Use
  Company Number: US-JNJFOC-20150923098

PATIENT
  Sex: Male

DRUGS (1)
  1. PARAFON FORTE [Suspect]
     Active Substance: CHLORZOXAZONE
     Indication: MYALGIA
     Route: 048

REACTIONS (2)
  - Drug dose omission [Unknown]
  - Back pain [Not Recovered/Not Resolved]

NARRATIVE: CASE EVENT DATE: 2015
